FAERS Safety Report 6945449-8 (Version None)
Quarter: 2010Q3

REPORT INFORMATION
  Report Type: 
  Country: None (occurrence: None)
  Receive Date: 20100827
  Receipt Date: 20100819
  Transmission Date: 20110219
  Serious: Yes (Death)
  Sender: FDA-Public Use
  Company Number: GB-ROCHE-721975

PATIENT
  Sex: Male
  Weight: 65.8 kg

DRUGS (4)
  1. BEVACIZUMAB [Suspect]
     Dosage: DATE OF LAST DOSE PRIOR TO SAE:  15 FEBRUARY 2010
     Route: 042
     Dates: start: 20091231
  2. CAPECITABINE [Suspect]
     Dosage: DATE OF LAST DOSE PRIOR TO SAE:  15 FEBRUARY 2010
     Route: 048
     Dates: start: 20091230
  3. CISPLATIN [Suspect]
     Dosage: DATE OF LAST DOSE PRIOR TO SAE:  15 FEBRUARY 2010
     Route: 042
     Dates: start: 20091230
  4. EPIRUBICIN [Suspect]
     Dosage: DATE OF LAST DOSE PRIOR TO SAE:  15 FEBRUARY 2010
     Route: 042
     Dates: start: 20091230

REACTIONS (1)
  - GASTROINTESTINAL ANASTOMOTIC LEAK [None]
